FAERS Safety Report 9186155 (Version 1)
Quarter: 2013Q1

REPORT INFORMATION
  Report Type: Spontaneous
  Country: US (occurrence: US)
  Receive Date: 20130325
  Receipt Date: 20130325
  Transmission Date: 20140127
  Serious: Yes (Other)
  Sender: FDA-Public Use
  Company Number: US-GLAXOSMITHKLINE-A1015795A

PATIENT
  Age: 41 Year
  Sex: Female

DRUGS (4)
  1. LAMOTRIGINE [Suspect]
     Indication: EPILEPSY
     Dosage: 200MG PER DAY
     Route: 048
     Dates: start: 201201, end: 201210
  2. LAMICTAL [Suspect]
     Indication: EPILEPSY
     Dates: start: 201210
  3. AMITRIPTYLINE [Concomitant]
  4. ZANTAC [Concomitant]

REACTIONS (2)
  - Petit mal epilepsy [Recovering/Resolving]
  - Condition aggravated [Recovering/Resolving]
